FAERS Safety Report 9959983 (Version 1)
Quarter: 2014Q1

REPORT INFORMATION
  Report Type: Report from Study
  Country: US (occurrence: US)
  Receive Date: 20140305
  Receipt Date: 20140305
  Transmission Date: 20141002
  Serious: No
  Sender: FDA-Public Use
  Company Number: US-ABBVIE-13P-163-1106457-00

PATIENT
  Age: 27 Year
  Sex: Female

DRUGS (6)
  1. HUMIRA [Suspect]
     Indication: CROHN^S DISEASE
     Dates: start: 201304, end: 20130614
  2. CITALOPRAM [Concomitant]
     Indication: DEPRESSION
  3. ORTHO CYCLEN [Concomitant]
     Indication: CONTRACEPTION
  4. DICLOFENAC [Concomitant]
     Indication: ARTHRITIS
  5. OMEPRAZOLE [Concomitant]
     Indication: PROPHYLAXIS AGAINST GASTROINTESTINAL ULCER
  6. FLUTICASONE [Concomitant]
     Indication: SEASONAL ALLERGY
     Route: 045

REACTIONS (7)
  - Incorrect dose administered [Not Recovered/Not Resolved]
  - Injection site swelling [Not Recovered/Not Resolved]
  - Injection site pruritus [Not Recovered/Not Resolved]
  - Injection site pain [Not Recovered/Not Resolved]
  - Injection site pain [Not Recovered/Not Resolved]
  - Pain [Not Recovered/Not Resolved]
  - Injection site vesicles [Not Recovered/Not Resolved]
